FAERS Safety Report 13663456 (Version 1)
Quarter: 2017Q2

REPORT INFORMATION
  Report Type: Spontaneous
  Country: US (occurrence: US)
  Receive Date: 20170616
  Receipt Date: 20170616
  Transmission Date: 20170830
  Serious: Yes (Hospitalization)
  Sender: FDA-Public Use
  Company Number: None

PATIENT
  Age: 82 Year
  Sex: Male
  Weight: 49.94 kg

DRUGS (1)
  1. LONSURF [Suspect]
     Active Substance: TIPIRACIL HYDROCHLORIDE\TRIFLURIDINE
     Indication: COLON CANCER
     Dosage: 15-6.14    TAKE 2 PO
     Route: 048
     Dates: start: 20170525

REACTIONS (4)
  - Condition aggravated [None]
  - Therapy cessation [None]
  - Renal disorder [None]
  - Hospitalisation [None]
